FAERS Safety Report 10678253 (Version 3)
Quarter: 2015Q1

REPORT INFORMATION
  Report Type: Spontaneous
  Country: JP (occurrence: JP)
  Receive Date: 20141229
  Receipt Date: 20150212
  Transmission Date: 20150720
  Serious: Yes (Death, Hospitalization, Other)
  Sender: FDA-Public Use
  Company Number: PHHY2014JP169128

PATIENT
  Age: 64 Year
  Sex: Female

DRUGS (2)
  1. ZOMETA [Suspect]
     Active Substance: ZOLEDRONIC ACID
     Indication: METASTASES TO BONE
     Dosage: 5 MG
     Route: 041
     Dates: start: 200606, end: 201001
  2. CAPECITABINE. [Concomitant]
     Active Substance: CAPECITABINE
     Indication: METASTASES TO BONE
     Route: 048
     Dates: start: 200606, end: 201001

REACTIONS (8)
  - Purulent discharge [Recovering/Resolving]
  - Gingival swelling [Recovering/Resolving]
  - Metastases to lung [Fatal]
  - Osteonecrosis of jaw [Not Recovered/Not Resolved]
  - Oral cavity fistula [Not Recovered/Not Resolved]
  - Candida infection [Unknown]
  - General physical health deterioration [Unknown]
  - Trismus [Recovering/Resolving]

NARRATIVE: CASE EVENT DATE: 200912
